FAERS Safety Report 7580014-3 (Version None)
Quarter: 2011Q2

REPORT INFORMATION
  Report Type: 
  Country: None (occurrence: None)
  Receive Date: 20110629
  Receipt Date: 20110623
  Transmission Date: 20111010
  Serious: Yes (Hospitalization, Other)
  Sender: FDA-Public Use
  Company Number: US-BRISTOL-MYERS SQUIBB COMPANY-15682958

PATIENT
  Age: 65 Year
  Sex: Male
  Weight: 50 kg

DRUGS (3)
  1. CEFEPIME [Concomitant]
     Dates: start: 20110428
  2. IPILIMUMAB [Suspect]
     Indication: MALIGNANT MELANOMA
     Dosage: LAST DOSE ON 12MAY11
     Route: 042
     Dates: start: 20110308
  3. VANCOMYCIN [Concomitant]
     Dates: start: 20110428

REACTIONS (7)
  - OEDEMA [None]
  - URINARY TRACT INFECTION [None]
  - ANAEMIA [None]
  - PYREXIA [None]
  - TACHYCARDIA [None]
  - DECREASED APPETITE [None]
  - PAIN [None]
